FAERS Safety Report 8244775-2 (Version None)
Quarter: 2012Q1

REPORT INFORMATION
  Report Type: 
  Country: None (occurrence: None)
  Receive Date: 20120329
  Receipt Date: 20110330
  Transmission Date: 20120608
  Serious: No
  Sender: FDA-Public Use
  Company Number: US-MYLANLABS-2011S1006785

PATIENT
  Age: 56 Year
  Sex: Female

DRUGS (7)
  1. FENTANYL-100 [Suspect]
     Indication: PAIN
     Dosage: CHANGED Q72H
     Route: 062
     Dates: start: 20110318
  2. FENTANYL-100 [Suspect]
     Indication: INTERVERTEBRAL DISC PROTRUSION
     Dosage: CHANGED Q72H
     Route: 062
     Dates: start: 20110318
  3. THYROID THERAPY [Concomitant]
  4. FENTANYL-100 [Suspect]
     Indication: FIBROMYALGIA
     Dosage: CHANGED Q72H
     Route: 062
     Dates: start: 20110318
  5. LEXAPRO [Concomitant]
  6. KLONOPIN [Concomitant]
     Indication: ANXIETY
  7. VITAMIN D [Concomitant]

REACTIONS (9)
  - AGITATION [None]
  - DECREASED APPETITE [None]
  - DRUG EFFECT DECREASED [None]
  - ASTHENIA [None]
  - HYPERHIDROSIS [None]
  - CONFUSIONAL STATE [None]
  - TEMPERATURE REGULATION DISORDER [None]
  - PAIN [None]
  - WEIGHT DECREASED [None]
